FAERS Safety Report 10359349 (Version 12)
Quarter: 2015Q1

REPORT INFORMATION
  Report Type: Spontaneous
  Country: CA (occurrence: CA)
  Receive Date: 20140804
  Receipt Date: 20150305
  Transmission Date: 20150720
  Serious: Yes (Other)
  Sender: FDA-Public Use
  Company Number: CA-ROCHE-1444110

PATIENT
  Age: 59 Year
  Sex: Male
  Weight: 75 kg

DRUGS (19)
  1. LYRICA [Concomitant]
     Active Substance: PREGABALIN
     Dosage: 150 MG IN MORNING AND 225 MG IN EVENING
     Route: 065
  2. PREDNISONE. [Concomitant]
     Active Substance: PREDNISONE
     Dosage: INCREASED BY 5 MG
     Route: 065
  3. XOLAIR [Suspect]
     Active Substance: OMALIZUMAB
     Indication: ASTHMA
     Route: 058
     Dates: start: 20130530
  4. SINGULAIR [Concomitant]
     Active Substance: MONTELUKAST SODIUM
  5. CORTISONE [Concomitant]
     Active Substance: CORTISONE\HYDROCORTISONE
     Route: 065
  6. PREDNISONE. [Concomitant]
     Active Substance: PREDNISONE
     Dosage: INCREASED BY 5 MG
     Route: 065
  7. DILAUDID [Concomitant]
     Active Substance: HYDROMORPHONE HYDROCHLORIDE
  8. XOLAIR [Suspect]
     Active Substance: OMALIZUMAB
     Route: 058
     Dates: start: 20141127
  9. CORTISONE [Concomitant]
     Active Substance: CORTISONE\HYDROCORTISONE
     Route: 065
  10. LYRICA [Concomitant]
     Active Substance: PREGABALIN
     Dosage: 300 MG AT NIGHT AND 225 MG
     Route: 065
  11. AVELOX [Concomitant]
     Active Substance: MOXIFLOXACIN HYDROCHLORIDE
     Dosage: FOR 10 DAYS
     Route: 065
     Dates: start: 20141030
  12. XOLAIR [Suspect]
     Active Substance: OMALIZUMAB
     Route: 058
     Dates: start: 20141231
  13. PREDNISONE. [Concomitant]
     Active Substance: PREDNISONE
     Route: 065
  14. HYDROMORPH CONTIN [Concomitant]
     Active Substance: HYDROMORPHONE
  15. QVAR [Concomitant]
     Active Substance: BECLOMETHASONE DIPROPIONATE
  16. LYRICA [Concomitant]
     Active Substance: PREGABALIN
     Dosage: 150 MG IN MORNING AND 225 MG IN EVENING
     Route: 065
  17. SYMBICORT [Concomitant]
     Active Substance: BUDESONIDE\FORMOTEROL FUMARATE DIHYDRATE
  18. CORTISONE [Concomitant]
     Active Substance: CORTISONE\HYDROCORTISONE
     Route: 065
  19. LYRICA [Concomitant]
     Active Substance: PREGABALIN
     Route: 065

REACTIONS (26)
  - Fatigue [Unknown]
  - Total lung capacity decreased [Unknown]
  - Contusion [Unknown]
  - Insomnia [Unknown]
  - Sciatic nerve injury [Unknown]
  - Weight decreased [Not Recovered/Not Resolved]
  - Decreased appetite [Unknown]
  - Oropharyngeal pain [Recovering/Resolving]
  - Dyspnoea exertional [Unknown]
  - Nerve injury [Unknown]
  - Polyneuropathy [Not Recovered/Not Resolved]
  - Asthenia [Unknown]
  - Blood pressure decreased [Unknown]
  - Peroneal nerve palsy [Not Recovered/Not Resolved]
  - Distractibility [Unknown]
  - Respiratory rate increased [Not Recovered/Not Resolved]
  - Chest discomfort [Unknown]
  - Somnolence [Unknown]
  - Dyspnoea [Unknown]
  - Pain [Unknown]
  - Swelling [Unknown]
  - Productive cough [Recovered/Resolved]
  - Cough [Recovering/Resolving]
  - Back pain [Unknown]
  - Hernia [Unknown]
  - Fall [Unknown]

NARRATIVE: CASE EVENT DATE: 201306
